FAERS Safety Report 8605729 (Version 2)
Quarter: 2012Q4

REPORT INFORMATION
  Report Type: Report from Study
  Country: ZW (occurrence: ZW)
  Receive Date: 20120608
  Receipt Date: 20121126
  Transmission Date: 20130627
  Serious: Yes (Life-Threatening, Hospitalization)
  Sender: FDA-Public Use
  Company Number: ZW-ABBOTT-12P-190-0940874-00

PATIENT
  Age: 57 Year
  Sex: Female

DRUGS (4)
  1. ALUVIA TABLETS [Suspect]
     Indication: HIV INFECTION
     Dosage: 100 mg/25 mg
     Route: 048
     Dates: start: 20110307
  2. RALTEGRAVIR [Concomitant]
     Indication: HIV INFECTION
     Dates: start: 20110307
  3. COTRIMOXAZOLE [Concomitant]
     Indication: PRODUCT USED FOR UNKNOWN INDICATION
     Dates: start: 20081001
  4. CATEGORY 1 TB TREATMENT [Concomitant]
     Indication: TUBERCULOSIS
     Dates: start: 20110221

REACTIONS (3)
  - Anaemia [Not Recovered/Not Resolved]
  - Non-Hodgkin^s lymphoma [Not Recovered/Not Resolved]
  - Lower limb fracture [Not Recovered/Not Resolved]
